FAERS Safety Report 14631400 (Version 2)
Quarter: 2018Q2

REPORT INFORMATION
  Report Type: Report from Study
  Country: DE (occurrence: DE)
  Receive Date: 20180313
  Receipt Date: 20180424
  Transmission Date: 20180711
  Serious: Yes (Hospitalization, Other)
  Sender: FDA-Public Use
  Company Number: PHHY2017DE170559

PATIENT
  Sex: Male
  Weight: 83 kg

DRUGS (7)
  1. TAFINLAR [Suspect]
     Active Substance: DABRAFENIB MESYLATE
     Indication: METASTATIC MALIGNANT MELANOMA
     Dosage: 150 UNK, UNK
     Route: 048
     Dates: start: 20170317
  2. BUDES [Concomitant]
     Active Substance: BUDESONIDE
     Indication: PRODUCT USED FOR UNKNOWN INDICATION
     Dosage: 256 UG, BID
     Route: 045
     Dates: start: 20171127
  3. VALSACOR [Concomitant]
     Active Substance: VALSARTAN
     Indication: MITRAL VALVE INCOMPETENCE
  4. PARACETAMOL [Concomitant]
     Active Substance: ACETAMINOPHEN
     Indication: MALIGNANT MELANOMA
     Dosage: 500 MG, PRN
     Route: 048
     Dates: start: 20170413
  5. TRAMETINIB [Suspect]
     Active Substance: TRAMETINIB
     Indication: METASTATIC MALIGNANT MELANOMA
     Dosage: 2 MG, QD
     Route: 048
     Dates: start: 20170317
  6. VALSACOR [Concomitant]
     Active Substance: VALSARTAN
     Indication: TRICUSPID VALVE INCOMPETENCE
  7. VALSACOR [Concomitant]
     Active Substance: VALSARTAN
     Indication: HYPERTENSION
     Dosage: 320 MG, QD
     Route: 048

REACTIONS (4)
  - Metastases to gallbladder [Unknown]
  - Metastatic malignant melanoma [Recovered/Resolved]
  - Thrombocytopenia [Not Recovered/Not Resolved]
  - Infection [Recovered/Resolved]

NARRATIVE: CASE EVENT DATE: 20170413
